FAERS Safety Report 8300292-2 (Version None)
Quarter: 2012Q2

REPORT INFORMATION
  Report Type: 
  Country: None (occurrence: None)
  Receive Date: 20120420
  Receipt Date: 20120416
  Transmission Date: 20120825
  Serious: Yes (Other)
  Sender: FDA-Public Use
  Company Number: US-PFIZER INC-2012063638

PATIENT
  Sex: Female
  Weight: 70.295 kg

DRUGS (7)
  1. METOPROLOL [Concomitant]
     Indication: HYPERTENSION
     Dosage: 50 MG, 2X/DAY
     Route: 048
  2. AMLODIPINE [Concomitant]
     Indication: HYPERTENSION
     Dosage: 10 MG, DAILY
  3. PREMARIN [Suspect]
     Indication: DYSPAREUNIA
  4. PREMARIN [Suspect]
     Indication: CYSTITIS
  5. PREMARIN [Suspect]
     Indication: VAGINAL DISORDER
     Dosage: 3X/WEEK
     Route: 067
     Dates: start: 20080101, end: 20120227
  6. SYNTHROID [Concomitant]
     Indication: HYPOTHYROIDISM
     Dosage: 125 UG, DAILY
  7. PRAVASTATIN [Concomitant]
     Indication: BLOOD CHOLESTEROL INCREASED
     Dosage: 20 MG, DAILY
     Route: 048

REACTIONS (8)
  - STRABISMUS [None]
  - BREAST DISCOMFORT [None]
  - DIZZINESS [None]
  - BREAST PAIN [None]
  - HYPERHIDROSIS [None]
  - VISUAL IMPAIRMENT [None]
  - VISION BLURRED [None]
  - BREAST TENDERNESS [None]
